FAERS Safety Report 11394192 (Version 3)
Quarter: 2016Q2

REPORT INFORMATION
  Report Type: Spontaneous
  Country: US (occurrence: US)
  Receive Date: 20150819
  Receipt Date: 20160627
  Transmission Date: 20160815
  Serious: Yes (Hospitalization, Other)
  Sender: FDA-Public Use
  Company Number: US-TEVA-586013USA

PATIENT
  Age: 57 Year
  Sex: Female

DRUGS (7)
  1. VORINOSTAT [Suspect]
     Active Substance: VORINOSTAT
     Route: 065
  2. GABAPENTIN. [Concomitant]
     Active Substance: GABAPENTIN
     Route: 048
  3. AMIODARONE [Concomitant]
     Active Substance: AMIODARONE
     Route: 065
  4. VALACICLOVIR [Suspect]
     Active Substance: VALACYCLOVIR HYDROCHLORIDE
     Indication: HERPES SIMPLEX
     Dosage: 500 MILLIGRAM DAILY;
     Route: 048
  5. ACICLOVIR [Suspect]
     Active Substance: ACYCLOVIR
     Indication: HERPES SIMPLEX
     Route: 048
  6. INTERFERON [Suspect]
     Active Substance: INTERFERON
     Route: 065
  7. AZITHROMYCIN ANHYDROUS. [Concomitant]
     Active Substance: AZITHROMYCIN ANHYDROUS
     Dosage: 500 MG/DAY
     Route: 065

REACTIONS (9)
  - Dermatitis [Recovered/Resolved]
  - Parakeratosis [Recovered/Resolved]
  - Hypersensitivity [Recovered/Resolved]
  - Pain in extremity [Unknown]
  - Eczema [Recovered/Resolved]
  - Gastrointestinal toxicity [Unknown]
  - Flushing [Unknown]
  - Dermatitis psoriasiform [Recovered/Resolved]
  - Herpes simplex [Recovered/Resolved]
